FAERS Safety Report 7265837-2 (Version None)
Quarter: 2011Q1

REPORT INFORMATION
  Report Type: 
  Country: None (occurrence: None)
  Receive Date: 20110131
  Receipt Date: 20110124
  Transmission Date: 20110831
  Serious: Yes (Other)
  Sender: FDA-Public Use
  Company Number: A0908631A

PATIENT
  Age: 44 Year
  Sex: Female

DRUGS (7)
  1. ESTROGENIC SUBSTANCE [Concomitant]
  2. LAMICTAL [Suspect]
     Indication: DEPRESSION
     Route: 048
     Dates: start: 20070901, end: 20080601
  3. PROPRANOLOL [Concomitant]
  4. ALLEGRA [Concomitant]
  5. DARVOCET-N 100 [Concomitant]
  6. AMBIEN [Concomitant]
  7. SYNTHROID [Concomitant]

REACTIONS (6)
  - STOMATITIS [None]
  - SKIN EXFOLIATION [None]
  - PRURITUS [None]
  - RASH MACULAR [None]
  - BLISTER [None]
  - PEMPHIGOID [None]
